FAERS Safety Report 6005017-1 (Version None)
Quarter: 2008Q4

REPORT INFORMATION
  Report Type: 
  Country: None (occurrence: None)
  Receive Date: 20081216
  Receipt Date: 20081030
  Transmission Date: 20090506
  Serious: No
  Sender: FDA-Public Use
  Company Number: US-BAUSCH-2008BL004632

PATIENT
  Age: 51 Year
  Sex: Female
  Weight: 74 kg

DRUGS (4)
  1. ALAWAY [Suspect]
     Indication: EYE ALLERGY
     Route: 047
     Dates: start: 20071001, end: 20081030
  2. WELLBUTRIN [Concomitant]
     Indication: DEPRESSION
     Route: 048
  3. CARTONIC [Concomitant]
     Indication: CARDIAC DISORDER
     Route: 048
  4. DEXAPHENADINE [Concomitant]
     Route: 048

REACTIONS (1)
  - EYE IRRITATION [None]
